FAERS Safety Report 9714320 (Version 1)
Quarter: 2013Q4

REPORT INFORMATION
  Report Type: Spontaneous
  Country: NL (occurrence: NL)
  Receive Date: 20131126
  Receipt Date: 20131126
  Transmission Date: 20140711
  Serious: Yes (Other)
  Sender: FDA-Public Use
  Company Number: NL-BAYER-2013-142806

PATIENT
  Sex: Male

DRUGS (1)
  1. MIRENA [Suspect]
     Route: 062

REACTIONS (2)
  - Penile pain [None]
  - Penile haemorrhage [None]
